FAERS Safety Report 15567151 (Version 1)
Quarter: 2018Q4

REPORT INFORMATION
  Report Type: Spontaneous
  Country: US (occurrence: US)
  Receive Date: 20181030
  Receipt Date: 20181030
  Transmission Date: 20190205
  Serious: No
  Sender: FDA-Public Use
  Company Number: US-BAYER-2018-194714

PATIENT
  Age: 69 Year
  Sex: Female
  Weight: 112.97 kg

DRUGS (1)
  1. ALEVE [Suspect]
     Active Substance: NAPROXEN SODIUM
     Indication: PAIN
     Dosage: 4 DF, QD 4 CAPLETS DAILY
     Route: 048
     Dates: start: 201801

REACTIONS (4)
  - Expired product administered [Unknown]
  - Incorrect product administration duration [Unknown]
  - Gastric disorder [Not Recovered/Not Resolved]
  - Extra dose administered [Unknown]

NARRATIVE: CASE EVENT DATE: 201801
